FAERS Safety Report 16781489 (Version 1)
Quarter: 2019Q3

REPORT INFORMATION
  Report Type: Spontaneous
  Country: TJ (occurrence: US)
  Receive Date: 20190906
  Receipt Date: 20190906
  Transmission Date: 20191005
  Serious: Yes (Other)
  Sender: FDA-Public Use
  Company Number: TJ-PFIZER INC-2019383499

PATIENT
  Age: 5 Year
  Sex: Female
  Weight: 19.2 kg

DRUGS (15)
  1. LINEZOLID. [Suspect]
     Active Substance: LINEZOLID
     Indication: EXTRAPULMONARY TUBERCULOSIS
  2. MOXIFLOXACIN. [Suspect]
     Active Substance: MOXIFLOXACIN
     Indication: TUBERCULOSIS OF INTRATHORACIC LYMPH NODES
     Dosage: 200 MG, DAILY
     Dates: start: 20190706, end: 20190813
  3. MOXIFLOXACIN. [Suspect]
     Active Substance: MOXIFLOXACIN
     Indication: EXTRAPULMONARY TUBERCULOSIS
  4. MOXIFLOXACIN. [Suspect]
     Active Substance: MOXIFLOXACIN
     Indication: TUBERCULOSIS
  5. PYRAZINAMIDE. [Suspect]
     Active Substance: PYRAZINAMIDE
     Indication: EXTRAPULMONARY TUBERCULOSIS
  6. CLOFAZIMINE [Suspect]
     Active Substance: CLOFAZIMINE
     Indication: TUBERCULOSIS
  7. LINEZOLID. [Suspect]
     Active Substance: LINEZOLID
     Indication: TUBERCULOSIS OF INTRATHORACIC LYMPH NODES
     Dosage: 300 MG, DAILY
     Dates: start: 20190706, end: 20190813
  8. CLOFAZIMINE [Suspect]
     Active Substance: CLOFAZIMINE
     Indication: EXTRAPULMONARY TUBERCULOSIS
  9. LINEZOLID. [Suspect]
     Active Substance: LINEZOLID
     Indication: TUBERCULOSIS
  10. PYRAZINAMIDE. [Suspect]
     Active Substance: PYRAZINAMIDE
     Indication: TUBERCULOSIS
  11. PYRAZINAMIDE. [Suspect]
     Active Substance: PYRAZINAMIDE
     Indication: TUBERCULOSIS OF INTRATHORACIC LYMPH NODES
     Dosage: 600 MG, DAILY
     Dates: start: 20190718, end: 20190813
  12. CLOFAZIMINE [Suspect]
     Active Substance: CLOFAZIMINE
     Indication: TUBERCULOSIS OF INTRATHORACIC LYMPH NODES
     Dosage: 50 MG, DAILY
     Dates: start: 20190706, end: 20190813
  13. DELAMANID [Suspect]
     Active Substance: DELAMANID
     Indication: TUBERCULOSIS OF INTRATHORACIC LYMPH NODES
     Dosage: 50 MG, DAILY
     Dates: start: 20190706, end: 20190813
  14. DELAMANID [Suspect]
     Active Substance: DELAMANID
     Indication: EXTRAPULMONARY TUBERCULOSIS
  15. DELAMANID [Suspect]
     Active Substance: DELAMANID
     Indication: TUBERCULOSIS

REACTIONS (5)
  - Blood creatinine increased [Unknown]
  - Phobia [Unknown]
  - Hyperhidrosis [Unknown]
  - Hallucination, visual [Not Recovered/Not Resolved]
  - Nausea [Unknown]

NARRATIVE: CASE EVENT DATE: 20190812
